FAERS Safety Report 5143756-5 (Version None)
Quarter: 2006Q4

REPORT INFORMATION
  Report Type: 
  Country: None (occurrence: None)
  Receive Date: 20061106
  Receipt Date: 20061030
  Transmission Date: 20070319
  Serious: Yes (Life-Threatening, Hospitalization)
  Sender: FDA-Public Use
  Company Number: US-JNJFOC-20060702724

PATIENT
  Sex: Male
  Weight: 138.8 kg

DRUGS (8)
  1. REMICADE [Suspect]
     Indication: RHEUMATOID ARTHRITIS
  2. PLAVIX [Suspect]
     Indication: DRUG USE FOR UNKNOWN INDICATION
  3. ASPIRIN [Suspect]
     Indication: DRUG USE FOR UNKNOWN INDICATION
  4. PREDNISONE TAB [Concomitant]
  5. FOLIC ACID [Concomitant]
  6. AMIODARONE HCL [Concomitant]
  7. PROTONIX [Concomitant]
  8. VICODIN [Concomitant]
     Indication: BACK PAIN

REACTIONS (1)
  - INTESTINAL ULCER [None]
